FAERS Safety Report 7738091-2 (Version None)
Quarter: 2011Q3

REPORT INFORMATION
  Report Type: 
  Country: None (occurrence: None)
  Receive Date: 20110908
  Receipt Date: 20110905
  Transmission Date: 20111222
  Serious: Yes (Hospitalization)
  Sender: FDA-Public Use
  Company Number: US-TEVA-299490USA

PATIENT
  Age: 54 Year
  Sex: Male

DRUGS (5)
  1. OCTREOTIDE ACETATE [Suspect]
     Dosage: 50 UG/HR
     Route: 042
  2. FOLIC ACID [Concomitant]
  3. THIAMINE [Concomitant]
  4. CIPROFLOXACIN [Concomitant]
  5. OCTREOTIDE ACETATE [Suspect]
     Route: 040

REACTIONS (1)
  - THROMBOCYTOPENIA [None]
